FAERS Safety Report 13125788 (Version 1)
Quarter: 2017Q1

REPORT INFORMATION
  Report Type: Spontaneous
  Country: US (occurrence: US)
  Receive Date: 20170118
  Receipt Date: 20170118
  Transmission Date: 20170428
  Serious: Yes (Hospitalization, Other)
  Sender: FDA-Public Use
  Company Number: US-SEBELA IRELAND LIMITED-2016SEB01545

PATIENT
  Age: 65 Year
  Sex: Female

DRUGS (1)
  1. IMURAN [Suspect]
     Active Substance: AZATHIOPRINE
     Indication: SCLERODERMA
     Route: 048

REACTIONS (26)
  - Chills [Recovered/Resolved]
  - Haemorrhoids [Unknown]
  - Angina pectoris [Unknown]
  - Pancytopenia [Unknown]
  - Vision blurred [Recovered/Resolved]
  - Off label use [Unknown]
  - Urinary incontinence [Unknown]
  - Anxiety [Unknown]
  - Oesophagitis [Unknown]
  - Abdominal discomfort [Unknown]
  - Musculoskeletal pain [Unknown]
  - Depression [Unknown]
  - Pyrexia [Recovered/Resolved]
  - Renal impairment [Unknown]
  - Urinary tract infection [Unknown]
  - Gastrooesophageal reflux disease [Unknown]
  - Hypotension [Recovered/Resolved]
  - Hyperhidrosis [Unknown]
  - Anaemia [Unknown]
  - Dysphagia [Unknown]
  - Liver function test abnormal [Unknown]
  - Dizziness [Recovered/Resolved]
  - Onychomycosis [Unknown]
  - Tonsillitis [Unknown]
  - Urosepsis [Unknown]
  - Gastroenteritis [Unknown]

NARRATIVE: CASE EVENT DATE: 2006
